FAERS Safety Report 12491330 (Version 1)
Quarter: 2016Q2

REPORT INFORMATION
  Report Type: Spontaneous
  Country: IT (occurrence: IT)
  Receive Date: 20160623
  Receipt Date: 20160623
  Transmission Date: 20160815
  Serious: Yes (Life-Threatening, Hospitalization, Other)
  Sender: FDA-Public Use
  Company Number: IT-ACCORD-041663

PATIENT
  Age: 74 Year
  Sex: Female
  Weight: 78 kg

DRUGS (22)
  1. GABAPENTIN. [Concomitant]
     Active Substance: GABAPENTIN
  2. ALLOPURINOL. [Concomitant]
     Active Substance: ALLOPURINOL
  3. ROCURONIUM/ROCURONIUM BROMIDE [Concomitant]
     Indication: ANAESTHESIA
  4. SEVOFLURANE. [Concomitant]
     Active Substance: SEVOFLURANE
     Indication: ANAESTHESIA
     Dosage: 0.5-1 MAC/HR
  5. NITROGLYCERIN. [Concomitant]
     Active Substance: NITROGLYCERIN
  6. NOREPINEPHRINE [Concomitant]
     Active Substance: NOREPINEPHRINE\NOREPINEPHRINE BITARTRATE
     Indication: VASOPLEGIA SYNDROME
  7. ERGOCALCIFEROL. [Concomitant]
     Active Substance: ERGOCALCIFEROL
  8. METHOTREXATE [Concomitant]
     Active Substance: METHOTREXATE
  9. AMISULPRIDE [Concomitant]
     Active Substance: AMISULPRIDE
  10. CANRENONE [Concomitant]
     Active Substance: CANRENONE
  11. FOLINE [Concomitant]
  12. PARACETAMOL [Concomitant]
     Active Substance: ACETAMINOPHEN
  13. SERTRALINE [Suspect]
     Active Substance: SERTRALINE HYDROCHLORIDE
     Indication: PRODUCT USED FOR UNKNOWN INDICATION
  14. TRAZODONE [Concomitant]
     Active Substance: TRAZODONE HYDROCHLORIDE
  15. SIMVASTATIN. [Concomitant]
     Active Substance: SIMVASTATIN
  16. PROPOFOL. [Concomitant]
     Active Substance: PROPOFOL
     Indication: ANAESTHESIA
  17. LANSOPRAZOLE. [Concomitant]
     Active Substance: LANSOPRAZOLE
  18. FUROSEMIDE. [Concomitant]
     Active Substance: FUROSEMIDE
  19. METHYLTHIONINIUM [Interacting]
     Active Substance: METHYLENE BLUE
     Indication: VASOPLEGIA SYNDROME
  20. FENTANYL. [Concomitant]
     Active Substance: FENTANYL
     Indication: ANAESTHESIA
  21. LEVOTHYROXINE. [Concomitant]
     Active Substance: LEVOTHYROXINE
  22. PREDNISONE. [Concomitant]
     Active Substance: PREDNISONE

REACTIONS (6)
  - Sepsis [Unknown]
  - Drug interaction [Unknown]
  - Serotonin syndrome [Unknown]
  - Multiple organ dysfunction syndrome [Unknown]
  - Cardiogenic shock [Unknown]
  - Coma [Unknown]
